FAERS Safety Report 17829341 (Version 1)
Quarter: 2020Q2

REPORT INFORMATION
  Report Type: Spontaneous
  Country: US (occurrence: US)
  Receive Date: 20200527
  Receipt Date: 20200527
  Transmission Date: 20200714
  Serious: Yes (Hospitalization)
  Sender: FDA-Public Use
  Company Number: None

PATIENT
  Age: 64 Year
  Sex: Female
  Weight: 61.2 kg

DRUGS (1)
  1. DALBAVANCIN. [Suspect]
     Active Substance: DALBAVANCIN
     Indication: OSTEOMYELITIS
     Dosage: ?          OTHER FREQUENCY:ONCE;?
     Route: 041
     Dates: start: 20200520, end: 20200520

REACTIONS (5)
  - Acute kidney injury [None]
  - Hypotension [None]
  - Lactic acidosis [None]
  - Hypothermia [None]
  - Anaphylactoid reaction [None]

NARRATIVE: CASE EVENT DATE: 20200521
